FAERS Safety Report 5364961-9 (Version None)
Quarter: 2007Q2

REPORT INFORMATION
  Report Type: 
  Country: None (occurrence: None)
  Receive Date: 20070621
  Receipt Date: 20070606
  Transmission Date: 20071010
  Serious: Yes (Other)
  Sender: FDA-Public Use
  Company Number: US-AMGEN-STX228315

PATIENT
  Sex: Female

DRUGS (1)
  1. ENBREL [Suspect]
     Indication: PSORIATIC ARTHROPATHY
     Route: 058
     Dates: start: 20070530

REACTIONS (4)
  - ALTERED STATE OF CONSCIOUSNESS [None]
  - DIZZINESS [None]
  - FALL [None]
  - LOSS OF CONTROL OF LEGS [None]
